FAERS Safety Report 10334546 (Version 1)
Quarter: 2014Q3

REPORT INFORMATION
  Report Type: Spontaneous
  Country: US (occurrence: US)
  Receive Date: 20140723
  Receipt Date: 20140723
  Transmission Date: 20150326
  Serious: Yes (Other)
  Sender: FDA-Public Use
  Company Number: US-MYLANLABS-2014S1016533

PATIENT
  Age: 27 Year
  Sex: Female

DRUGS (7)
  1. DACTINOMYCIN [Suspect]
     Active Substance: DACTINOMYCIN
     Indication: BENIGN HYDATIDIFORM MOLE
     Dosage: 9 BIWEEKLY CYCLES
     Route: 065
  2. METHOTREXATE [Suspect]
     Active Substance: METHOTREXATE
     Indication: BENIGN HYDATIDIFORM MOLE
     Dosage: SINGLE CYCLE
     Route: 065
  3. ETOPOSIDE. [Suspect]
     Active Substance: ETOPOSIDE
     Indication: BENIGN HYDATIDIFORM MOLE
     Dosage: 9 BIWEEKLY CYCLES
     Route: 065
  4. ETOPOSIDE. [Suspect]
     Active Substance: ETOPOSIDE
     Indication: OFF LABEL USE
     Dosage: 9 BIWEEKLY CYCLES
     Route: 065
  5. CYCLOPHOSPHAMIDE. [Suspect]
     Active Substance: CYCLOPHOSPHAMIDE
     Indication: BENIGN HYDATIDIFORM MOLE
     Dosage: 9 BIWEEKLY CYCLES
     Route: 065
  6. VINCRISTINE [Suspect]
     Active Substance: VINCRISTINE
     Indication: BENIGN HYDATIDIFORM MOLE
     Dosage: 9 BIWEEKLY CYCLES
     Route: 065
  7. METHOTREXATE [Suspect]
     Active Substance: METHOTREXATE
     Indication: BENIGN HYDATIDIFORM MOLE
     Dosage: 9 BIWEEKLY CYCLES
     Route: 065

REACTIONS (1)
  - Acute myeloid leukaemia [Unknown]
